FAERS Safety Report 7667308-8 (Version None)
Quarter: 2011Q3

REPORT INFORMATION
  Report Type: 
  Country: None (occurrence: None)
  Receive Date: 20110806
  Receipt Date: 20110606
  Transmission Date: 20111222
  Serious: No
  Sender: FDA-Public Use
  Company Number: US-ABBOTT-11P-163-0731252-00

PATIENT
  Sex: Female
  Weight: 72.64 kg

DRUGS (10)
  1. UNKNOWN INHALER [Concomitant]
     Indication: PRODUCT USED FOR UNKNOWN INDICATION
     Dosage: DAILY
  2. NIASPAN [Suspect]
     Indication: HIGH DENSITY LIPOPROTEIN DECREASED
     Dosage: AT BEDTIME
     Dates: start: 20110525
  3. MECLIZINE [Concomitant]
     Indication: DIZZINESS
  4. TRIAMTEREN [Concomitant]
     Indication: PRODUCT USED FOR UNKNOWN INDICATION
  5. CHANTIX [Suspect]
     Indication: PRODUCT USED FOR UNKNOWN INDICATION
     Dates: start: 20110501
  6. RANITIDINE [Concomitant]
     Indication: PRODUCT USED FOR UNKNOWN INDICATION
  7. SPIRIVA [Concomitant]
     Indication: PRODUCT USED FOR UNKNOWN INDICATION
  8. CLONAZEPAM [Concomitant]
     Indication: PRODUCT USED FOR UNKNOWN INDICATION
     Dosage: AT BEDTIME
  9. CRESTOR [Concomitant]
     Indication: PRODUCT USED FOR UNKNOWN INDICATION
     Dosage: AT BEDTIME
  10. HYDROCODONE [Concomitant]
     Indication: PAIN
     Dosage: 5/500 MG 1/2 TABLET AS NEEDED

REACTIONS (10)
  - OXYGEN SATURATION DECREASED [None]
  - SELF-INJURIOUS IDEATION [None]
  - HOT FLUSH [None]
  - FLUID RETENTION [None]
  - BLOOD POTASSIUM DECREASED [None]
  - CONTUSION [None]
  - LOSS OF CONSCIOUSNESS [None]
  - FALL [None]
  - DYSPNOEA [None]
  - OLIGURIA [None]
